FAERS Safety Report 9541640 (Version 2)
Quarter: 2013Q4

REPORT INFORMATION
  Report Type: Spontaneous
  Country: DE (occurrence: DE)
  Receive Date: 20130923
  Receipt Date: 20131009
  Transmission Date: 20140711
  Serious: Yes (Hospitalization, Other)
  Sender: FDA-Public Use
  Company Number: DE-JNJFOC-20130912158

PATIENT
  Sex: Male

DRUGS (4)
  1. XARELTO [Suspect]
     Indication: THROMBOSIS PROPHYLAXIS
     Route: 048
  2. XARELTO [Suspect]
     Indication: HIP ARTHROPLASTY
     Route: 048
  3. XARELTO [Suspect]
     Indication: KNEE ARTHROPLASTY
     Route: 048
  4. ASS [Concomitant]
     Route: 065

REACTIONS (3)
  - Ileus [Unknown]
  - Intestinal haemorrhage [Unknown]
  - Haematoma [Unknown]
